FAERS Safety Report 25644229 (Version 1)
Quarter: 2025Q3

REPORT INFORMATION
  Report Type: Spontaneous
  Country: ET (occurrence: ET)
  Receive Date: 20250805
  Receipt Date: 20250805
  Transmission Date: 20251020
  Serious: Yes (Other)
  Sender: PANACEA BIOTEC PHARMA LIMITED
  Company Number: ET-PBT-010592

PATIENT
  Age: 17 Year
  Sex: Female

DRUGS (18)
  1. TACROLIMUS [Suspect]
     Active Substance: TACROLIMUS
     Indication: Evidence based treatment
     Route: 048
  2. PREDNISOLONE [Concomitant]
     Active Substance: PREDNISOLONE
     Indication: Proteinuria
     Route: 065
  3. ENALAPRIL [Suspect]
     Active Substance: ENALAPRIL
     Indication: Proteinuria
     Route: 065
  4. CALCIUM [Concomitant]
     Active Substance: CALCIUM
     Indication: Product used for unknown indication
     Route: 065
  5. COTRIMOXAZOLE [Concomitant]
     Active Substance: SULFAMETHOXAZOLE\TRIMETHOPRIM
     Indication: Prophylaxis
     Route: 065
  6. TACROLIMUS [Suspect]
     Active Substance: TACROLIMUS
     Indication: Proteinuria
     Route: 065
  7. TACROLIMUS [Suspect]
     Active Substance: TACROLIMUS
     Indication: Proteinuria
     Route: 065
  8. PREDNISOLONE [Concomitant]
     Active Substance: PREDNISOLONE
     Indication: Proteinuria
     Route: 065
  9. PREDNISOLONE [Concomitant]
     Active Substance: PREDNISOLONE
     Indication: Proteinuria
     Route: 065
  10. PREDNISOLONE [Concomitant]
     Active Substance: PREDNISOLONE
     Indication: Proteinuria
     Route: 065
  11. PREDNISOLONE [Concomitant]
     Active Substance: PREDNISOLONE
     Indication: Proteinuria
     Route: 065
  12. PREDNISOLONE [Concomitant]
     Active Substance: PREDNISOLONE
     Indication: Proteinuria
     Route: 065
  13. ENALAPRIL [Suspect]
     Active Substance: ENALAPRIL
     Indication: Proteinuria
     Route: 065
  14. ENALAPRIL [Suspect]
     Active Substance: ENALAPRIL
     Indication: Proteinuria
     Route: 065
  15. ENALAPRIL [Suspect]
     Active Substance: ENALAPRIL
     Indication: Proteinuria
     Route: 065
  16. ENALAPRIL [Suspect]
     Active Substance: ENALAPRIL
     Indication: Proteinuria
     Route: 065
  17. TACROLIMUS [Suspect]
     Active Substance: TACROLIMUS
     Indication: Evidence based treatment
     Route: 048
  18. TACROLIMUS [Suspect]
     Active Substance: TACROLIMUS
     Indication: Proteinuria
     Route: 048

REACTIONS (3)
  - Hypertension [Unknown]
  - Drug ineffective for unapproved indication [Unknown]
  - Hyperkalaemia [Unknown]
